FAERS Safety Report 16658241 (Version 5)
Quarter: 2019Q4

REPORT INFORMATION
  Report Type: Report from Study
  Country: US (occurrence: US)
  Receive Date: 20190801
  Receipt Date: 20191014
  Transmission Date: 20200122
  Serious: Yes (Hospitalization)
  Sender: FDA-Public Use
  Company Number: US-ACTELION-A-US2019-192920

PATIENT
  Age: 29 Year
  Sex: Female
  Weight: 77.1 kg

DRUGS (11)
  1. OPSUMIT [Suspect]
     Active Substance: MACITENTAN
     Dosage: 10 MG, QD
     Route: 048
  2. UPTRAVI [Suspect]
     Active Substance: SELEXIPAG
     Dosage: 200 MCG, BID
     Route: 048
     Dates: start: 201906, end: 20190910
  3. ADEMPAS [Concomitant]
     Active Substance: RIOCIGUAT
     Dosage: 0.5 MG, BID
     Route: 048
     Dates: start: 201906, end: 20190911
  4. UPTRAVI [Suspect]
     Active Substance: SELEXIPAG
     Dosage: 200 MCG, TID
     Route: 048
     Dates: start: 201906, end: 20190911
  5. REMODULIN [Suspect]
     Active Substance: TREPROSTINIL
     Indication: PRODUCT USED FOR UNKNOWN INDICATION
     Dosage: 36 NG/KG, PER MIN
     Route: 058
     Dates: start: 201909
  6. UPTRAVI [Suspect]
     Active Substance: SELEXIPAG
     Dosage: 800 MCG, BID
     Route: 048
     Dates: start: 20190718, end: 20190723
  7. UPTRAVI [Suspect]
     Active Substance: SELEXIPAG
     Dosage: 400 MCG, BID
     Route: 048
     Dates: start: 201906, end: 20190901
  8. REMODULIN [Suspect]
     Active Substance: TREPROSTINIL
     Dosage: 33 NG/KG, PER MIN
     Route: 058
     Dates: start: 201909, end: 20190928
  9. OPSUMIT [Suspect]
     Active Substance: MACITENTAN
     Indication: PULMONARY ARTERIAL HYPERTENSION
     Dosage: 10 MG, QD
     Route: 048
     Dates: start: 201806
  10. UPTRAVI [Suspect]
     Active Substance: SELEXIPAG
     Indication: PULMONARY ARTERIAL HYPERTENSION
     Dosage: 600 MCG, BID
     Route: 048
     Dates: start: 201906, end: 20190717
  11. EPOPROSTENOL. [Concomitant]
     Active Substance: EPOPROSTENOL
     Route: 042

REACTIONS (14)
  - Sepsis [Recovered/Resolved]
  - Vomiting [Unknown]
  - Hypotension [Recovering/Resolving]
  - Oedema peripheral [Recovering/Resolving]
  - Drug intolerance [Unknown]
  - Diarrhoea [Unknown]
  - Dyspnoea [Recovering/Resolving]
  - Urinary tract infection [Recovered/Resolved]
  - Nausea [Unknown]
  - Feeding disorder [Unknown]
  - Asthenia [Unknown]
  - Dehydration [Recovering/Resolving]
  - Dyspnoea at rest [Recovering/Resolving]
  - Headache [Unknown]

NARRATIVE: CASE EVENT DATE: 20190911
